FAERS Safety Report 7524939-3 (Version None)
Quarter: 2011Q2

REPORT INFORMATION
  Report Type: 
  Country: None (occurrence: None)
  Receive Date: 20110606
  Receipt Date: 20110523
  Transmission Date: 20111010
  Serious: Yes (Other)
  Sender: FDA-Public Use
  Company Number: FI-ELI_LILLY_AND_COMPANY-FI201105007765

PATIENT
  Sex: Female

DRUGS (6)
  1. ZYPREXA [Suspect]
     Indication: PSYCHOTIC DISORDER
     Dosage: 15 MG, UNK
     Dates: start: 20110429, end: 20110503
  2. LORAZEPAM [Concomitant]
     Indication: ANXIETY
     Dosage: 1 MG, TID
     Route: 048
     Dates: start: 20110429
  3. DEPRAKINE [Concomitant]
     Indication: PSYCHOTIC DISORDER
     Dosage: 1000 MG, QD
     Route: 048
     Dates: start: 20110429
  4. ZYPREXA [Suspect]
     Indication: PSYCHOTIC DISORDER
     Dosage: 10 MG, UNK
     Dates: start: 20110419, end: 20110429
  5. ARIPIPRAZOLE [Concomitant]
  6. IMOVANE [Concomitant]
     Indication: SLEEP DISORDER
     Dosage: 7.5 MG, PRN
     Route: 048
     Dates: start: 20110419

REACTIONS (2)
  - WHITE BLOOD CELL COUNT DECREASED [None]
  - NEUTROPHIL COUNT DECREASED [None]
